FAERS Safety Report 5824465-3 (Version None)
Quarter: 2008Q3

REPORT INFORMATION
  Report Type: 
  Country: None (occurrence: None)
  Receive Date: 20080728
  Receipt Date: 20080718
  Transmission Date: 20090109
  Serious: Yes (Hospitalization)
  Sender: FDA-Public Use
  Company Number: B0530325A

PATIENT
  Age: 57 Year
  Sex: Male

DRUGS (2)
  1. KIVEXA [Suspect]
     Indication: HIV INFECTION
     Route: 048
     Dates: start: 20060101
  2. SUSTIVA [Suspect]
     Indication: HIV INFECTION
     Route: 048

REACTIONS (5)
  - ASTHENIA [None]
  - DIABETIC KETOACIDOSIS [None]
  - HYPERGLYCAEMIA [None]
  - HYPERPHAGIA [None]
  - WEIGHT DECREASED [None]
